FAERS Safety Report 6503762-2 (Version None)
Quarter: 2009Q4

REPORT INFORMATION
  Report Type: 
  Country: None (occurrence: None)
  Receive Date: 20091217
  Receipt Date: 20091130
  Transmission Date: 20100525
  Serious: Yes (Hospitalization)
  Sender: FDA-Public Use
  Company Number: FR-GENENTECH-292574

PATIENT
  Sex: Male
  Weight: 79 kg

DRUGS (1)
  1. XOLAIR [Suspect]
     Indication: ASTHMA
     Dosage: 450 MG, Q2W
     Dates: start: 20091001

REACTIONS (3)
  - OEDEMA [None]
  - PRURITUS [None]
  - SENSATION OF HEAVINESS [None]
